FAERS Safety Report 9171653 (Version 1)
Quarter: 2013Q1

REPORT INFORMATION
  Report Type: Spontaneous
  Country: FR (occurrence: None)
  Receive Date: 20130313
  Receipt Date: 20130313
  Transmission Date: 20140127
  Serious: Yes (Hospitalization, Other)
  Sender: FDA-Public Use
  Company Number: FR-011099

PATIENT
  Age: 77 Year
  Sex: Male
  Weight: 70 kg

DRUGS (5)
  1. FIRMAGON [Suspect]
     Indication: PROSTATE CANCER
     Route: 058
     Dates: start: 20120727, end: 20120727
  2. LIPANTHYL [Concomitant]
  3. TADENAN [Concomitant]
  4. ZANEXTRA [Concomitant]
  5. ATENOLOL [Concomitant]

REACTIONS (1)
  - Hyperglycaemia [None]
